FAERS Safety Report 9419118 (Version 1)
Quarter: 2013Q3

REPORT INFORMATION
  Report Type: Spontaneous
  Country: CA (occurrence: CA)
  Receive Date: 20130725
  Receipt Date: 20130725
  Transmission Date: 20140515
  Serious: Yes (Hospitalization)
  Sender: FDA-Public Use
  Company Number: CA-NOVOPROD-383272

PATIENT
  Age: 53 Year
  Sex: Male

DRUGS (12)
  1. LEVEMIR PENFILL [Suspect]
     Indication: PRODUCT USED FOR UNKNOWN INDICATION
     Dosage: UNK
     Route: 058
  2. AVANDAMET [Suspect]
     Dosage: UNK
     Route: 065
  3. GLICLAZIDE [Suspect]
     Dosage: UNK
     Route: 065
  4. JANUVIA [Suspect]
     Dosage: UNK
     Route: 065
  5. ASPIRIN [Concomitant]
     Dosage: UNK
     Route: 065
  6. AVALIDE [Concomitant]
     Dosage: UNK
     Route: 065
  7. CADUET [Concomitant]
     Dosage: UNK
     Route: 065
  8. LISINOPRIL [Concomitant]
     Dosage: UNK
     Route: 065
  9. METOPROLOL [Suspect]
     Dosage: UNK
     Route: 065
  10. NEXAVAR [Suspect]
     Dosage: UNK (200 MG, 2 EVERY 1 DAY)
     Route: 065
  11. SUTENT [Suspect]
     Dosage: UNK (50 MG, 1 EVERY 1 DAY, DISCONTINUED AFTER 4 WEEKS)
     Route: 065
  12. PLACEBO [Suspect]
     Dosage: UNK
     Route: 065

REACTIONS (2)
  - Metabolic acidosis [Unknown]
  - Hypoglycaemia [Unknown]
